FAERS Safety Report 7490735-9 (Version None)
Quarter: 2011Q2

REPORT INFORMATION
  Report Type: 
  Country: None (occurrence: None)
  Receive Date: 20110519
  Receipt Date: 20090918
  Transmission Date: 20111010
  Serious: Yes (Death, Hospitalization, Other)
  Sender: FDA-Public Use
  Company Number: US-BAYER-200933842NA

PATIENT
  Age: 74 Year
  Sex: Male
  Weight: 90.703 kg

DRUGS (4)
  1. HYZAAR [Concomitant]
     Dosage: 100/25MG
  2. TRASYLOL [Suspect]
     Indication: CORONARY ARTERY BYPASS
     Dosage: 200ML FOLLOWED BY 75ML/HR
     Route: 042
     Dates: start: 20070917, end: 20070917
  3. CARDIZEM CD [Concomitant]
  4. HEPARIN [Concomitant]
     Dosage: 45,000 UNITS
     Dates: start: 20070917

REACTIONS (13)
  - DEATH [None]
  - FEAR [None]
  - MULTI-ORGAN FAILURE [None]
  - ANHEDONIA [None]
  - RENAL FAILURE [None]
  - ANXIETY [None]
  - UNEVALUABLE EVENT [None]
  - PAIN [None]
  - RENAL IMPAIRMENT [None]
  - EMOTIONAL DISTRESS [None]
  - STRESS [None]
  - RENAL INJURY [None]
  - INJURY [None]
